FAERS Safety Report 7302622 (Version 41)
Quarter: 2022Q3

REPORT INFORMATION
  Report Type: Spontaneous
  Country: CA (occurrence: CA)
  Receive Date: 20100302
  Receipt Date: 20220812
  Transmission Date: 20221026
  Serious: Yes (Other)
  Sender: FDA-Public Use
  Company Number: CA-MERCK-0907CAN00093

PATIENT
  Age: 52 Year
  Sex: Male

DRUGS (92)
  1. ISENTRESS [Suspect]
     Active Substance: RALTEGRAVIR POTASSIUM
     Indication: HIV infection
     Dosage: 400 MG, UNK
     Route: 048
  2. ISENTRESS [Suspect]
     Active Substance: RALTEGRAVIR POTASSIUM
     Dosage: UNK
     Route: 065
  3. ISENTRESS [Suspect]
     Active Substance: RALTEGRAVIR POTASSIUM
     Dosage: UNK
     Route: 065
  4. ISENTRESS [Suspect]
     Active Substance: RALTEGRAVIR POTASSIUM
     Dosage: UNK
     Route: 065
  5. ISENTRESS [Suspect]
     Active Substance: RALTEGRAVIR POTASSIUM
     Dosage: 400 MG, UNK
     Route: 048
  6. SUSTIVA [Suspect]
     Active Substance: EFAVIRENZ
     Indication: HIV infection
     Dosage: DOSAGE FORM NOT SPECIFIED
     Route: 048
  7. CRIXIVAN [Suspect]
     Active Substance: INDINAVIR SULFATE
     Indication: HIV infection
     Dosage: UNK
     Route: 048
  8. CRIXIVAN [Suspect]
     Active Substance: INDINAVIR SULFATE
     Dosage: UNK
     Route: 065
  9. LAMIVUDINE [Suspect]
     Active Substance: LAMIVUDINE
     Indication: HIV infection
     Dosage: DOSAGE FORM: NOT SPECIFIED
     Route: 065
  10. LAMIVUDINE [Suspect]
     Active Substance: LAMIVUDINE
     Indication: Antiretroviral therapy
     Dosage: DOSAGE FORM: NOT SPECIFIED
     Route: 048
  11. LAMIVUDINE [Suspect]
     Active Substance: LAMIVUDINE
     Dosage: UNK
     Route: 065
  12. ABACAVIR SUCCINATE [Suspect]
     Active Substance: ABACAVIR SUCCINATE
     Indication: HIV infection
     Dosage: UNK
     Route: 048
     Dates: start: 200802
  13. ABACAVIR SUCCINATE [Suspect]
     Active Substance: ABACAVIR SUCCINATE
     Indication: Antiretroviral therapy
     Dosage: UNK
     Route: 048
  14. ABACAVIR SUCCINATE [Suspect]
     Active Substance: ABACAVIR SUCCINATE
     Dosage: UNK
     Route: 065
  15. ABACAVIR SUCCINATE [Suspect]
     Active Substance: ABACAVIR SUCCINATE
     Dosage: UNK
     Route: 065
  16. ABACAVIR SUCCINATE [Suspect]
     Active Substance: ABACAVIR SUCCINATE
     Dosage: UNK
     Route: 048
  17. ABACAVIR SUCCINATE [Suspect]
     Active Substance: ABACAVIR SUCCINATE
     Dosage: UNK
     Route: 065
  18. PREZISTA [Suspect]
     Active Substance: DARUNAVIR ETHANOLATE
     Indication: HIV infection
     Dosage: UNK
     Route: 048
  19. PREZISTA [Suspect]
     Active Substance: DARUNAVIR ETHANOLATE
     Dosage: UNK
     Route: 065
  20. NORVIR [Suspect]
     Active Substance: RITONAVIR
     Indication: HIV infection
     Dosage: DOSAGE FORM NOT SPECIFIED
     Route: 048
     Dates: end: 200802
  21. NORVIR [Suspect]
     Active Substance: RITONAVIR
     Indication: Antiretroviral therapy
     Dosage: UNK
     Route: 065
  22. NORVIR [Suspect]
     Active Substance: RITONAVIR
     Dosage: UNK
     Route: 065
  23. NORVIR [Suspect]
     Active Substance: RITONAVIR
     Dosage: UNK
     Route: 065
  24. INTELENCE [Suspect]
     Active Substance: ETRAVIRINE
     Indication: HIV infection
     Dosage: UNK
     Route: 048
  25. INTELENCE [Suspect]
     Active Substance: ETRAVIRINE
     Dosage: UNK
     Route: 065
  26. INTELENCE [Suspect]
     Active Substance: ETRAVIRINE
     Dosage: UNK
     Route: 048
  27. RESCRIPTOR [Suspect]
     Active Substance: DELAVIRDINE MESYLATE
     Indication: HIV infection
     Dosage: UNK
     Route: 048
  28. RESCRIPTOR [Suspect]
     Active Substance: DELAVIRDINE MESYLATE
     Dosage: UNK
     Route: 065
  29. VIDEX EC [Suspect]
     Active Substance: DIDANOSINE
     Indication: HIV infection
     Dosage: CAPSULE ENTERIC COATED
     Route: 048
  30. VIDEX EC [Suspect]
     Active Substance: DIDANOSINE
     Dosage: UNK
     Route: 048
  31. LOPINAVIR\RITONAVIR [Suspect]
     Active Substance: LOPINAVIR\RITONAVIR
     Indication: HIV infection
     Dosage: UNK
     Route: 065
  32. LOPINAVIR\RITONAVIR [Suspect]
     Active Substance: LOPINAVIR\RITONAVIR
     Indication: Product used for unknown indication
  33. NEVIRAPINE [Suspect]
     Active Substance: NEVIRAPINE
     Indication: HIV infection
     Dosage: UNK
     Route: 048
  34. NEVIRAPINE [Suspect]
     Active Substance: NEVIRAPINE
     Dosage: UNK
     Route: 065
  35. NEVIRAPINE [Suspect]
     Active Substance: NEVIRAPINE
     Dosage: UNK
     Route: 065
  36. SAQUINAVIR [Suspect]
     Active Substance: SAQUINAVIR
     Indication: HIV infection
     Dosage: DOSAGR FORM: NOT SPECIFIED
     Route: 048
  37. SAQUINAVIR [Suspect]
     Active Substance: SAQUINAVIR
     Dosage: UNK
     Route: 065
  38. ZERIT [Suspect]
     Active Substance: STAVUDINE
     Indication: HIV infection
     Dosage: UNK
     Route: 065
  39. ZERIT [Suspect]
     Active Substance: STAVUDINE
     Dosage: DOAGE FORM: NOT SPECIFIED
     Route: 048
  40. ZERIT [Suspect]
     Active Substance: STAVUDINE
     Dosage: UNK
     Route: 065
  41. ZERIT [Suspect]
     Active Substance: STAVUDINE
     Dosage: DOAGE FORM: NOT SPECIFIED
     Route: 048
  42. ZERIT [Suspect]
     Active Substance: STAVUDINE
     Dosage: UNK
     Route: 048
  43. STAVUDINE [Suspect]
     Active Substance: STAVUDINE
     Indication: HIV infection
     Dosage: UNK
     Route: 048
  44. STAVUDINE [Suspect]
     Active Substance: STAVUDINE
     Dosage: UNK
     Route: 048
  45. VIREAD [Suspect]
     Active Substance: TENOFOVIR DISOPROXIL FUMARATE
     Indication: HIV infection
     Dosage: UNK
     Route: 048
  46. TENOFOVIR DISOPROXIL FUMARATE [Suspect]
     Active Substance: TENOFOVIR DISOPROXIL FUMARATE
     Indication: HIV infection
     Dosage: UNK
     Route: 048
  47. TENOFOVIR DISOPROXIL FUMARATE [Suspect]
     Active Substance: TENOFOVIR DISOPROXIL FUMARATE
     Indication: Product used for unknown indication
     Dosage: UNK
     Route: 065
  48. ZIDOVUDINE [Suspect]
     Active Substance: ZIDOVUDINE
     Indication: HIV infection
     Dosage: DOSAGE FORM: NOT SPECIFIED
     Route: 048
  49. ZIDOVUDINE [Suspect]
     Active Substance: ZIDOVUDINE
     Dosage: UNK
     Route: 065
  50. KALETRA [Suspect]
     Active Substance: LOPINAVIR\RITONAVIR
     Indication: HIV infection
     Dosage: UNK
     Route: 065
  51. KALETRA [Suspect]
     Active Substance: LOPINAVIR\RITONAVIR
     Indication: Antiretroviral therapy
     Dosage: DOSAGE FORM: NOT SPECIFIED
     Route: 048
  52. ENFUVIRTIDE [Suspect]
     Active Substance: ENFUVIRTIDE
     Indication: HIV infection
     Dosage: UNK
     Route: 058
  53. ENFUVIRTIDE [Suspect]
     Active Substance: ENFUVIRTIDE
     Indication: Product used for unknown indication
     Dosage: UNK
     Route: 048
  54. ENFUVIRTIDE [Suspect]
     Active Substance: ENFUVIRTIDE
     Dosage: FREQUENCY: TOTAL
     Route: 058
  55. ABACAVIR SULFATE [Suspect]
     Active Substance: ABACAVIR SULFATE
     Indication: HIV infection
     Dosage: UNK
     Route: 065
  56. ABACAVIR SULFATE [Suspect]
     Active Substance: ABACAVIR SULFATE
     Indication: Antiretroviral therapy
     Dosage: UNK
     Route: 048
  57. ABACAVIR SULFATE [Suspect]
     Active Substance: ABACAVIR SULFATE
     Indication: Product used for unknown indication
     Dosage: UNK
     Route: 065
  58. ABACAVIR SULFATE [Suspect]
     Active Substance: ABACAVIR SULFATE
     Dosage: UNK
     Route: 048
  59. ABACAVIR SULFATE [Suspect]
     Active Substance: ABACAVIR SULFATE
     Dosage: UNK
     Route: 065
  60. ABACAVIR SULFATE [Suspect]
     Active Substance: ABACAVIR SULFATE
     Dosage: UNK
     Route: 065
  61. DARUNAVIR [Suspect]
     Active Substance: DARUNAVIR
     Indication: HIV infection
     Dosage: UNK
     Route: 065
  62. DARUNAVIR [Suspect]
     Active Substance: DARUNAVIR
     Indication: Antiretroviral therapy
     Dosage: UNK
     Route: 065
  63. DARUNAVIR [Suspect]
     Active Substance: DARUNAVIR
     Dosage: UNK
     Route: 048
  64. DELAVIRDINE MESYLATE [Suspect]
     Active Substance: DELAVIRDINE MESYLATE
     Indication: HIV infection
     Dosage: UNK
     Route: 048
  65. DELAVIRDINE MESYLATE [Suspect]
     Active Substance: DELAVIRDINE MESYLATE
     Indication: Product used for unknown indication
     Dosage: UNK
     Route: 065
  66. DELAVIRDINE MESYLATE [Suspect]
     Active Substance: DELAVIRDINE MESYLATE
     Dosage: UNK
     Route: 048
  67. DIDANOSINE [Suspect]
     Active Substance: DIDANOSINE
     Indication: HIV infection
     Dosage: DOSAGE FORM: NOT SPECIFIED.
     Route: 065
  68. DIDANOSINE [Suspect]
     Active Substance: DIDANOSINE
     Dosage: DOSAGE FORM: NOT SPECIFIED.
     Route: 048
  69. DIDANOSINE [Suspect]
     Active Substance: DIDANOSINE
     Dosage: UNK
     Route: 065
  70. ETRAVIRINE [Suspect]
     Active Substance: ETRAVIRINE
     Indication: HIV infection
     Dosage: UNK
     Route: 048
  71. ETRAVIRINE [Suspect]
     Active Substance: ETRAVIRINE
     Indication: Antiretroviral therapy
     Dosage: UNK
     Route: 065
  72. INDINAVIR SULFATE [Suspect]
     Active Substance: INDINAVIR SULFATE
     Indication: HIV infection
     Dosage: UNK
     Route: 048
  73. INDINAVIR SULFATE [Suspect]
     Active Substance: INDINAVIR SULFATE
     Indication: HIV infection
     Dosage: UNK
     Route: 065
  74. INDINAVIR SULFATE [Suspect]
     Active Substance: INDINAVIR SULFATE
     Dosage: UNK
     Route: 048
  75. INDINAVIR SULFATE [Suspect]
     Active Substance: INDINAVIR SULFATE
     Dosage: UNK
     Route: 048
  76. NELFINAVIR MESYLATE [Suspect]
     Active Substance: NELFINAVIR MESYLATE
     Indication: HIV infection
     Dosage: 1 EVERY 9 MINUTES
     Route: 065
  77. NELFINAVIR MESYLATE [Suspect]
     Active Substance: NELFINAVIR MESYLATE
     Dosage: UNK
     Route: 048
  78. NELFINAVIR MESYLATE [Suspect]
     Active Substance: NELFINAVIR MESYLATE
     Dosage: UNK
     Route: 048
  79. RITONAVIR [Suspect]
     Active Substance: RITONAVIR
     Indication: HIV infection
     Dosage: DOSAGE FORM NOT SPECIFIED
     Route: 065
  80. RITONAVIR [Suspect]
     Active Substance: RITONAVIR
     Dosage: UNK
     Route: 065
  81. STAVUDINE [Suspect]
     Active Substance: STAVUDINE
     Indication: HIV infection
     Dosage: UNK
     Route: 048
  82. VIRAMUNE [Suspect]
     Active Substance: NEVIRAPINE
     Indication: HIV infection
     Dosage: UNK
     Route: 048
  83. VIRAMUNE [Suspect]
     Active Substance: NEVIRAPINE
     Dosage: UNK
     Route: 065
  84. VIRACEPT [Suspect]
     Active Substance: NELFINAVIR MESYLATE
     Indication: HIV infection
     Dosage: UNK
     Route: 065
  85. LOPINAVIR [Suspect]
     Active Substance: LOPINAVIR
     Indication: HIV infection
     Dosage: DOSAGE FORM: NOT SPECIFIED
     Route: 065
  86. EFAVIRENZ [Suspect]
     Active Substance: EFAVIRENZ
     Indication: HIV infection
     Dosage: DOSAGE FORM: NOT SPECIFIED.
     Route: 048
  87. EFAVIRENZ [Suspect]
     Active Substance: EFAVIRENZ
     Dosage: UNK
     Route: 065
  88. FUZEON [Suspect]
     Active Substance: ENFUVIRTIDE
     Route: 058
  89. FUZEON [Suspect]
     Active Substance: ENFUVIRTIDE
     Dosage: FREQUENCY: TOTAL
     Route: 058
  90. ZIAGEN [Suspect]
     Active Substance: ABACAVIR SULFATE
     Route: 065
  91. ATAZANAVIR SULFATE [Suspect]
     Active Substance: ATAZANAVIR SULFATE
     Indication: HIV infection
     Route: 048
  92. ATAZANAVIR SULFATE [Suspect]
     Active Substance: ATAZANAVIR SULFATE
     Indication: Antiretroviral therapy
     Dosage: UNK
     Route: 065

REACTIONS (9)
  - Progressive external ophthalmoplegia [Unknown]
  - Lipodystrophy acquired [Recovering/Resolving]
  - Mitochondrial toxicity [Recovering/Resolving]
  - Diplopia [Recovering/Resolving]
  - Eyelid ptosis [Recovering/Resolving]
  - Ophthalmoplegia [Unknown]
  - Ophthalmoplegia [Recovering/Resolving]
  - Blood lactic acid increased [Not Recovered/Not Resolved]
  - Dysphagia [Not Recovered/Not Resolved]
